FAERS Safety Report 13672608 (Version 1)
Quarter: 2017Q2

REPORT INFORMATION
  Report Type: Spontaneous
  Country: US (occurrence: US)
  Receive Date: 20170621
  Receipt Date: 20170621
  Transmission Date: 20170830
  Serious: Yes (Hospitalization, Other)
  Sender: FDA-Public Use
  Company Number: US-GLAXOSMITHKLINE-US2017094807

PATIENT
  Age: 50 Year
  Sex: Female

DRUGS (16)
  1. NIFEDIPINE. [Concomitant]
     Active Substance: NIFEDIPINE
  2. GABAPENTIN. [Concomitant]
     Active Substance: GABAPENTIN
  3. LORATADINE. [Concomitant]
     Active Substance: LORATADINE
  4. PREDNISONE. [Concomitant]
     Active Substance: PREDNISONE
  5. PROZAC [Concomitant]
     Active Substance: FLUOXETINE HYDROCHLORIDE
  6. HYDRALAZINE [Concomitant]
     Active Substance: HYDRALAZINE HYDROCHLORIDE
  7. LEFLUNOMIDE. [Concomitant]
     Active Substance: LEFLUNOMIDE
  8. METOPROLOL. [Concomitant]
     Active Substance: METOPROLOL
  9. BENLYSTA [Suspect]
     Active Substance: BELIMUMAB
     Indication: SYSTEMIC LUPUS ERYTHEMATOSUS
     Dosage: UNK UNK, Z
     Route: 042
     Dates: start: 2015, end: 201702
  10. MYCOPHENOLATE [Concomitant]
     Active Substance: MYCOPHENOLIC ACID
  11. CALCIUM [Concomitant]
     Active Substance: CALCIUM
  12. HYDROCHLOROTHIAZIDE. [Concomitant]
     Active Substance: HYDROCHLOROTHIAZIDE
  13. AMITRIPTYLINE [Concomitant]
     Active Substance: AMITRIPTYLINE
  14. OMEPRAZOLE. [Concomitant]
     Active Substance: OMEPRAZOLE
  15. FOLIC ACID. [Concomitant]
     Active Substance: FOLIC ACID
  16. ASPIRIN (BABY) [Concomitant]
     Active Substance: ASPIRIN

REACTIONS (19)
  - Sluggishness [Unknown]
  - Sciatica [Not Recovered/Not Resolved]
  - Skin discolouration [Not Recovered/Not Resolved]
  - Irritability [Unknown]
  - Diarrhoea [Not Recovered/Not Resolved]
  - Abdominal pain [Not Recovered/Not Resolved]
  - Eructation [Not Recovered/Not Resolved]
  - Depression [Unknown]
  - Gastrointestinal disorder [Not Recovered/Not Resolved]
  - Feeling abnormal [Unknown]
  - Drug effect delayed [Unknown]
  - Drug effect incomplete [Unknown]
  - Abdominal distension [Not Recovered/Not Resolved]
  - Myalgia [Unknown]
  - Intestinal obstruction [Recovered/Resolved]
  - Gastrointestinal surgery [Recovered/Resolved]
  - Suicidal ideation [Unknown]
  - Hypophagia [Not Recovered/Not Resolved]
  - Fatigue [Unknown]

NARRATIVE: CASE EVENT DATE: 201507
